FAERS Safety Report 16839348 (Version 1)
Quarter: 2019Q3

REPORT INFORMATION
  Report Type: Spontaneous
  Country: US (occurrence: US)
  Receive Date: 20190923
  Receipt Date: 20190923
  Transmission Date: 20191005
  Serious: Yes (Hospitalization, Other)
  Sender: FDA-Public Use
  Company Number: US-UCBSA-2019039601

PATIENT
  Age: 45 Year
  Sex: Female

DRUGS (1)
  1. LACOSAMIDE. [Suspect]
     Active Substance: LACOSAMIDE
     Indication: PRODUCT USED FOR UNKNOWN INDICATION
     Dosage: 450 MILLIGRAM, 2X/DAY (BID)

REACTIONS (10)
  - Nystagmus [Recovered/Resolved]
  - Electrocardiogram PR prolongation [Recovered/Resolved]
  - Accidental overdose [Unknown]
  - Hyperhidrosis [Unknown]
  - Diplopia [Unknown]
  - Electrocardiogram QRS complex prolonged [Recovered/Resolved]
  - Vertigo [Recovered/Resolved]
  - Nausea [Recovered/Resolved]
  - Vomiting [Unknown]
  - Toxicity to various agents [Unknown]
